FAERS Safety Report 9551660 (Version 1)
Quarter: 2013Q3

REPORT INFORMATION
  Report Type: Spontaneous
  Country: US (occurrence: US)
  Receive Date: 20130925
  Receipt Date: 20130925
  Transmission Date: 20140515
  Serious: No
  Sender: FDA-Public Use
  Company Number: US-MYLANLABS-2013S1001004

PATIENT
  Age: 53 Year
  Sex: Female
  Weight: 45.36 kg

DRUGS (3)
  1. SPIRONOLACTONE [Suspect]
     Route: 048
     Dates: start: 20130107
  2. SYNTHROID [Concomitant]
  3. AMBIEN [Concomitant]

REACTIONS (2)
  - Dysgeusia [Not Recovered/Not Resolved]
  - Dyspepsia [Not Recovered/Not Resolved]
